FAERS Safety Report 25263956 (Version 2)
Quarter: 2025Q4

REPORT INFORMATION
  Report Type: Spontaneous
  Country: US (occurrence: US)
  Receive Date: 20250502
  Receipt Date: 20251017
  Transmission Date: 20260118
  Serious: No
  Sender: BAYER HEALTHCARE PHARMACEUTICALS INC.
  Company Number: US-BAYER-2025A058652

PATIENT
  Age: 25 Year
  Sex: Female

DRUGS (1)
  1. KYLEENA [Suspect]
     Active Substance: LEVONORGESTREL
     Indication: Intrauterine contraception
     Dosage: 17.5?G/DAY
     Route: 015
     Dates: start: 202405

REACTIONS (5)
  - Abdominal pain lower [None]
  - Vulvovaginal discomfort [None]
  - Genital haemorrhage [None]
  - Back pain [None]
  - Depression [None]
